FAERS Safety Report 20456334 (Version 1)
Quarter: 2022Q1

REPORT INFORMATION
  Report Type: Report from Study
  Country: FR (occurrence: FR)
  Receive Date: 20220210
  Receipt Date: 20220210
  Transmission Date: 20220423
  Serious: Yes (Death, Hospitalization)
  Sender: FDA-Public Use
  Company Number: FR-PFIZER INC-202200199145

PATIENT
  Age: 70 Year
  Sex: Female
  Weight: 120 kg

DRUGS (1)
  1. AVELUMAB [Suspect]
     Active Substance: AVELUMAB
     Indication: Product used for unknown indication
     Dosage: 800 MG, CYCLIC: EVERY 15 DAYS
     Dates: start: 20210630, end: 20210811

REACTIONS (2)
  - Death [Fatal]
  - Haematuria [Not Recovered/Not Resolved]

NARRATIVE: CASE EVENT DATE: 20210811
